FAERS Safety Report 7906424-X (Version None)
Quarter: 2011Q4

REPORT INFORMATION
  Report Type: 
  Country: None (occurrence: None)
  Receive Date: 20111110
  Receipt Date: 20111107
  Transmission Date: 20120403
  Serious: Yes (Death, Hospitalization)
  Sender: FDA-Public Use
  Company Number: US-SHIRE-ALL1-2011-04355

PATIENT
  Sex: Male

DRUGS (1)
  1. LIALDA [Suspect]
     Indication: CROHN'S DISEASE
     Dosage: 1.2 G, UNKNOWN
     Route: 048

REACTIONS (6)
  - POST PROCEDURAL COMPLICATION [None]
  - CHRONIC HEPATIC FAILURE [None]
  - ADVERSE EVENT [None]
  - CONDITION AGGRAVATED [None]
  - DEATH [None]
  - OFF LABEL USE [None]
